FAERS Safety Report 19888528 (Version 1)
Quarter: 2021Q3

REPORT INFORMATION
  Report Type: Spontaneous
  Country: US (occurrence: US)
  Receive Date: 20210927
  Receipt Date: 20210927
  Transmission Date: 20211014
  Serious: No
  Sender: FDA-Public Use
  Company Number: US-KVK-TECH, INC-20210300039

PATIENT
  Age: 60 Year
  Sex: Female

DRUGS (2)
  1. OXYCODONE HYDROCHLORIDE TABLETS, USP [Suspect]
     Active Substance: OXYCODONE HYDROCHLORIDE
     Indication: PAIN MANAGEMENT
     Dosage: 5 PRESCRIBED DAILY
     Route: 048
  2. OXYCODONE HYDROCHLORIDE TABLETS, USP [Suspect]
     Active Substance: OXYCODONE HYDROCHLORIDE
     Dosage: 1 1/2 OF MY 5 PRESCRIBED DAILY
     Route: 048

REACTIONS (7)
  - Illness [Unknown]
  - Hypertension [Unknown]
  - Drooling [Unknown]
  - Adverse event [Unknown]
  - Lethargy [Unknown]
  - Unevaluable event [Unknown]
  - Withdrawal syndrome [Unknown]
